FAERS Safety Report 6049107-6 (Version None)
Quarter: 2009Q1

REPORT INFORMATION
  Report Type: 
  Country: None (occurrence: None)
  Receive Date: 20090123
  Receipt Date: 20090119
  Transmission Date: 20090719
  Serious: Yes (Life-Threatening)
  Sender: FDA-Public Use
  Company Number: IT-AVENTIS-200910656GDDC

PATIENT
  Age: 88 Year
  Sex: Female

DRUGS (5)
  1. SOLOSA [Suspect]
     Indication: DIABETES MELLITUS
     Route: 048
     Dates: start: 20081101
  2. LASIX [Concomitant]
     Route: 048
     Dates: start: 20081103
  3. DIGOXIN [Concomitant]
     Indication: ATRIAL FIBRILLATION
     Route: 048
     Dates: start: 20081101
  4. NORVASC [Concomitant]
     Indication: ESSENTIAL HYPERTENSION
     Route: 048
     Dates: start: 20081103
  5. ACETYLSALICYLIC ACID SRT [Concomitant]
     Route: 048
     Dates: start: 20081103

REACTIONS (4)
  - ANOREXIA [None]
  - CONFUSIONAL STATE [None]
  - HYPERHIDROSIS [None]
  - HYPOGLYCAEMIA [None]
